FAERS Safety Report 5775874-2 (Version None)
Quarter: 2008Q2

REPORT INFORMATION
  Report Type: 
  Country: None (occurrence: None)
  Receive Date: 20080617
  Receipt Date: 20080603
  Transmission Date: 20081010
  Serious: Yes (Other)
  Sender: FDA-Public Use
  Company Number: US-ELI_LILLY_AND_COMPANY-US200806000627

PATIENT
  Sex: Female

DRUGS (1)
  1. EVISTA [Suspect]
     Indication: PROPHYLAXIS
     Dosage: 60 MG, DAILY (1/D)
     Dates: end: 20080401

REACTIONS (4)
  - BLOOD TEST ABNORMAL [None]
  - HOT FLUSH [None]
  - KNEE ARTHROPLASTY [None]
  - ORAL SURGERY [None]
